FAERS Safety Report 14492558 (Version 1)
Quarter: 2018Q1

REPORT INFORMATION
  Report Type: Spontaneous
  Country: GB (occurrence: GB)
  Receive Date: 20180206
  Receipt Date: 20180206
  Transmission Date: 20180509
  Serious: Yes (Other)
  Sender: FDA-Public Use
  Company Number: GB-PFIZER INC-2018046951

PATIENT
  Age: 42 Year
  Sex: Male
  Weight: 76 kg

DRUGS (6)
  1. OLOPATADINE. [Concomitant]
     Active Substance: OLOPATADINE
     Dosage: 2 GTT, 1X/DAY
     Dates: start: 20170620
  2. DOXYCYCLINE MONOHYDRATE [Suspect]
     Active Substance: DOXYCYCLINE
     Dosage: UNK
     Dates: start: 20180112
  3. AMOXICILLIN. [Concomitant]
     Active Substance: AMOXICILLIN
     Dosage: 3 DF, 1X/DAY
     Dates: start: 20180112
  4. NASOFAN AQUEOUS [Concomitant]
     Active Substance: FLUTICASONE PROPIONATE
     Dosage: 2 DF AS DIRECTED
     Dates: start: 20170613
  5. SIMVASTATIN. [Concomitant]
     Active Substance: SIMVASTATIN
     Dosage: 1 DF AT NIGHT
     Dates: start: 20170503
  6. REFRESH CELLUVISC [Concomitant]
     Active Substance: CARBOXYMETHYLCELLULOSE SODIUM
     Dosage: 1-2 DROPS AS DIRECTED
     Dates: start: 20170503

REACTIONS (1)
  - Palpitations [Recovered/Resolved]

NARRATIVE: CASE EVENT DATE: 20180112
